FAERS Safety Report 17084243 (Version 1)
Quarter: 2019Q4

REPORT INFORMATION
  Report Type: Report from Study
  Country: US (occurrence: US)
  Receive Date: 20191127
  Receipt Date: 20191127
  Transmission Date: 20200122
  Serious: No
  Sender: FDA-Public Use
  Company Number: NVSC2019US003266

PATIENT
  Age: 18 Year
  Sex: Male

DRUGS (3)
  1. ILARIS [Suspect]
     Active Substance: CANAKINUMAB
     Dosage: UNK
     Route: 065
     Dates: start: 201907
  2. ILARIS [Suspect]
     Active Substance: CANAKINUMAB
     Indication: AUTOINFLAMMATORY DISEASE
     Dosage: 150 MG, Q4W
     Route: 058
     Dates: start: 20190501
  3. ILARIS [Suspect]
     Active Substance: CANAKINUMAB
     Dosage: 150 UNK
     Route: 058
     Dates: start: 20191021

REACTIONS (4)
  - Injection site bruising [Unknown]
  - Injection site extravasation [Unknown]
  - Device issue [Unknown]
  - Injection site haemorrhage [Unknown]

NARRATIVE: CASE EVENT DATE: 201907
